FAERS Safety Report 12629162 (Version 2)
Quarter: 2017Q1

REPORT INFORMATION
  Report Type: Spontaneous
  Country: US (occurrence: US)
  Receive Date: 20160808
  Receipt Date: 20170207
  Transmission Date: 20170428
  Serious: Yes (Death, Other)
  Sender: FDA-Public Use
  Company Number: US-AMGEN-USASP2016100884

PATIENT
  Age: 58 Year
  Sex: Female

DRUGS (14)
  1. OXALIPLATINE [Suspect]
     Active Substance: OXALIPLATIN
     Indication: COLORECTAL CANCER
     Route: 065
  2. CAPECITABINE. [Suspect]
     Active Substance: CAPECITABINE
     Dosage: 1000 MG, TID
     Route: 048
  3. SORAFENIB [Suspect]
     Active Substance: SORAFENIB
     Indication: COLON CANCER
     Route: 065
  4. PANITUMUMAB [Suspect]
     Active Substance: PANITUMUMAB
     Indication: COLORECTAL CANCER
     Route: 065
  5. GSK2118436 [Suspect]
     Active Substance: DABRAFENIB
     Indication: COLORECTAL CANCER
     Route: 065
  6. REGORAFENIB [Suspect]
     Active Substance: REGORAFENIB
     Indication: COLORECTAL CANCER
     Dosage: 160 MG, QD
     Route: 065
     Dates: start: 201401
  7. FLUOROURACIL. [Suspect]
     Active Substance: FLUOROURACIL
     Indication: COLORECTAL CANCER
     Route: 065
  8. BEVACIZUMAB [Suspect]
     Active Substance: BEVACIZUMAB
     Indication: COLORECTAL CANCER
     Route: 065
  9. CAPECITABINE. [Suspect]
     Active Substance: CAPECITABINE
     Indication: COLORECTAL CANCER
     Dosage: UNK
     Route: 065
     Dates: start: 201401
  10. REGORAFENIB [Suspect]
     Active Substance: REGORAFENIB
     Dosage: UNK
     Route: 065
  11. GSK1120212 [Suspect]
     Active Substance: TRAMETINIB
     Indication: COLORECTAL CANCER
     Route: 065
  12. CETUXIMAB. [Suspect]
     Active Substance: CETUXIMAB
     Indication: COLORECTAL CANCER
     Route: 065
  13. IRINOTECAN [Suspect]
     Active Substance: IRINOTECAN
     Indication: COLORECTAL CANCER
     Route: 065
  14. CALCIUM FOLINATE [Suspect]
     Active Substance: LEUCOVORIN CALCIUM
     Indication: COLORECTAL CANCER
     Route: 042

REACTIONS (4)
  - Pulmonary haemorrhage [Fatal]
  - Pulmonary embolism [Fatal]
  - Colorectal cancer [Fatal]
  - Pneumonia [Fatal]
